FAERS Safety Report 9820353 (Version 1)
Quarter: 2013Q4

REPORT INFORMATION
  Report Type: Spontaneous
  Country: US (occurrence: None)
  Receive Date: 20131025
  Receipt Date: 20131025
  Transmission Date: 20140711
  Serious: No
  Sender: FDA-Public Use
  Company Number: AP356-00115-SPO-US

PATIENT
  Age: 43 Year
  Sex: Female

DRUGS (2)
  1. BELVIQ (LORCASERIN HYDROCHLORIDE) [Suspect]
     Indication: WEIGHT DECREASED
     Dosage: 20 MG, 2 IN 1 D, ORAL
     Route: 048
     Dates: start: 201309, end: 20130917
  2. PRISTIQ (DESVENLAFAXINE SUCCINATE) [Concomitant]

REACTIONS (2)
  - Malaise [None]
  - Fatigue [None]
